FAERS Safety Report 26090115 (Version 1)
Quarter: 2025Q4

REPORT INFORMATION
  Report Type: Report from Study
  Country: CN (occurrence: CN)
  Receive Date: 20251126
  Receipt Date: 20251126
  Transmission Date: 20260117
  Serious: Yes (Other)
  Sender: ROCHE
  Company Number: CN-ROCHE-10000381295

PATIENT
  Age: 72 Year
  Sex: Male
  Weight: 61 kg

DRUGS (36)
  1. POLATUZUMAB VEDOTIN [Suspect]
     Active Substance: POLATUZUMAB VEDOTIN
     Indication: Diffuse large B-cell lymphoma
     Route: 042
     Dates: start: 20240906, end: 20240906
  2. POLATUZUMAB VEDOTIN [Suspect]
     Active Substance: POLATUZUMAB VEDOTIN
     Route: 042
     Dates: start: 20241003, end: 20241003
  3. RITUXIMAB [Suspect]
     Active Substance: RITUXIMAB
     Indication: Diffuse large B-cell lymphoma
     Route: 042
     Dates: start: 20240906, end: 20240906
  4. RITUXIMAB [Suspect]
     Active Substance: RITUXIMAB
     Route: 042
     Dates: start: 20241001, end: 20241001
  5. CYCLOPHOSPHAMIDE [Suspect]
     Active Substance: CYCLOPHOSPHAMIDE
     Indication: Diffuse large B-cell lymphoma
     Route: 042
     Dates: start: 20240909, end: 20240909
  6. CYCLOPHOSPHAMIDE [Suspect]
     Active Substance: CYCLOPHOSPHAMIDE
     Route: 042
     Dates: start: 20241002, end: 20241002
  7. DOXORUBICIN [Suspect]
     Active Substance: DOXORUBICIN
     Indication: Diffuse large B-cell lymphoma
     Route: 042
     Dates: start: 20240909, end: 20240909
  8. DOXORUBICIN [Suspect]
     Active Substance: DOXORUBICIN
     Route: 042
     Dates: start: 20241002, end: 20241002
  9. PREDNISONE [Suspect]
     Active Substance: PREDNISONE
     Indication: Diffuse large B-cell lymphoma
     Route: 048
     Dates: start: 20240909, end: 20240913
  10. PREDNISONE [Suspect]
     Active Substance: PREDNISONE
     Route: 048
     Dates: start: 20241002, end: 20241006
  11. Human Granulocyte Colony-stimulating Factor Injection [Concomitant]
     Route: 058
     Dates: start: 20240918, end: 20240918
  12. Entecavir Tablets [Concomitant]
     Route: 048
     Dates: start: 20240930
  13. Entecavir Tablets [Concomitant]
     Route: 048
     Dates: start: 20241115, end: 20241118
  14. SODIUM BICARBONATE [Concomitant]
     Active Substance: SODIUM BICARBONATE
     Route: 042
     Dates: start: 20240930
  15. SODIUM BICARBONATE [Concomitant]
     Active Substance: SODIUM BICARBONATE
     Route: 042
     Dates: start: 20241115, end: 20241118
  16. FEBUXOSTAT [Concomitant]
     Active Substance: FEBUXOSTAT
     Route: 048
     Dates: start: 20240930
  17. FEBUXOSTAT [Concomitant]
     Active Substance: FEBUXOSTAT
     Route: 048
     Dates: start: 20241115, end: 20241118
  18. Magnesium Isoglycyrrhizinate Injection [Concomitant]
     Route: 042
     Dates: start: 20240930
  19. Magnesium Isoglycyrrhizinate Injection [Concomitant]
     Route: 042
     Dates: start: 20241115, end: 20241118
  20. Calcium Carbonate and Vitamin D3 Tablets [Concomitant]
     Route: 048
     Dates: start: 20240930
  21. Calcium Carbonate and Vitamin D3 Tablets [Concomitant]
     Route: 048
     Dates: start: 20241115, end: 20241118
  22. Lansoprazole for Injection [Concomitant]
     Route: 042
     Dates: start: 20240930
  23. Compound Amiloride Hydrochloride Tablets [Concomitant]
     Route: 048
     Dates: start: 20240930
  24. Compound Amiloride Hydrochloride Tablets [Concomitant]
     Route: 048
     Dates: start: 20241115, end: 20241118
  25. DEXAMETHASONE SODIUM PHOSPHATE [Concomitant]
     Active Substance: DEXAMETHASONE SODIUM PHOSPHATE
     Route: 050
     Dates: start: 20240930, end: 20240930
  26. DEXAMETHASONE SODIUM PHOSPHATE [Concomitant]
     Active Substance: DEXAMETHASONE SODIUM PHOSPHATE
     Route: 050
     Dates: start: 20241115, end: 20241115
  27. METHOTREXATE [Concomitant]
     Active Substance: METHOTREXATE
     Route: 050
     Dates: start: 20240930, end: 20240930
  28. METHOTREXATE [Concomitant]
     Active Substance: METHOTREXATE
     Route: 050
     Dates: start: 20241115, end: 20241115
  29. CYTARABINE [Concomitant]
     Active Substance: CYTARABINE
     Route: 050
     Dates: start: 20240930, end: 20240930
  30. CYTARABINE [Concomitant]
     Active Substance: CYTARABINE
     Route: 050
     Dates: start: 20241115, end: 20241115
  31. PROMETHAZINE [Concomitant]
     Active Substance: PROMETHAZINE HYDROCHLORIDE
     Route: 030
  32. PROMETHAZINE [Concomitant]
     Active Substance: PROMETHAZINE HYDROCHLORIDE
     Route: 030
  33. Dexrazoxan for injection [Concomitant]
     Route: 042
  34. Fosappitan dimeglumine for injection [Concomitant]
     Route: 042
  35. PEGylated Recombinant Human Granulocyte Colony-Stimulating Factor Inje [Concomitant]
     Route: 058
  36. Rabeprazole Sodium for Injection [Concomitant]
     Route: 042
     Dates: start: 20241115, end: 20241118

REACTIONS (2)
  - Electrocardiogram QT prolonged [Recovered/Resolved]
  - Electrocardiogram abnormal [Recovered/Resolved]

NARRATIVE: CASE EVENT DATE: 20241001
